FAERS Safety Report 20566151 (Version 3)
Quarter: 2022Q4

REPORT INFORMATION
  Report Type: Spontaneous
  Country: DE (occurrence: DE)
  Receive Date: 20220308
  Receipt Date: 20221021
  Transmission Date: 20230112
  Serious: Yes (Life-Threatening, Hospitalization, Other)
  Sender: FDA-Public Use
  Company Number: DE-BRISTOL-MYERS SQUIBB COMPANY-BMS-2022-032830

PATIENT
  Age: 73 Year
  Sex: Male
  Weight: 104 kg

DRUGS (3)
  1. ORENCIA [Suspect]
     Active Substance: ABATACEPT
     Indication: Product used for unknown indication
     Route: 058
     Dates: start: 20210720, end: 20211111
  2. METHOTREXATE [Concomitant]
     Active Substance: METHOTREXATE
     Indication: Product used for unknown indication
     Route: 058
     Dates: start: 20070907, end: 20211111
  3. PREDNISOLONE [Concomitant]
     Active Substance: PREDNISOLONE
     Indication: Product used for unknown indication
     Dosage: STOP DATE ONGOING
     Route: 048
     Dates: start: 20070801

REACTIONS (7)
  - Metastases to bone [Not Recovered/Not Resolved]
  - Bronchial carcinoma [Not Recovered/Not Resolved]
  - Pulmonary mass [Unknown]
  - Lymphadenopathy mediastinal [Unknown]
  - Osteolysis [Unknown]
  - Hepatic cancer [Unknown]
  - Renal disorder [Unknown]

NARRATIVE: CASE EVENT DATE: 20220217
